FAERS Safety Report 12971820 (Version 2)
Quarter: 2017Q1

REPORT INFORMATION
  Report Type: Spontaneous
  Country: CH (occurrence: CH)
  Receive Date: 20161124
  Receipt Date: 20170123
  Transmission Date: 20170428
  Serious: Yes (Disabling, Other)
  Sender: FDA-Public Use
  Company Number: CH-AMGEN-CHESP2016163395

PATIENT
  Age: 75 Year
  Sex: Female
  Weight: 44 kg

DRUGS (4)
  1. KALCIPOS [Concomitant]
     Active Substance: CALCIUM CARBONATE
     Indication: OSTEOPOROSIS
     Dosage: 1000 UNIT, QD
     Dates: start: 2011
  2. PROLIA [Suspect]
     Active Substance: DENOSUMAB
     Indication: OSTEOPOROSIS
     Dosage: 60 MG, Q6MO
     Route: 058
     Dates: start: 20110429
  3. VI DE3 [Concomitant]
     Indication: FRACTURE
  4. VI DE3 [Concomitant]
     Indication: OSTEOPOROSIS
     Dosage: 8 UNK, QD (1 DROP=100U)
     Dates: start: 20161003

REACTIONS (1)
  - Spinal fracture [Not Recovered/Not Resolved]

NARRATIVE: CASE EVENT DATE: 20160812
